FAERS Safety Report 8530490-4 (Version None)
Quarter: 2012Q3

REPORT INFORMATION
  Report Type: 
  Country: None (occurrence: None)
  Receive Date: 20120723
  Receipt Date: 20120711
  Transmission Date: 20120928
  Serious: Yes (Life-Threatening, Hospitalization)
  Sender: FDA-Public Use
  Company Number: US-009507513-1207USA006712

PATIENT

DRUGS (2)
  1. VANCOMYCIN [Concomitant]
  2. INVANZ [Suspect]
     Indication: PROPHYLAXIS
     Route: 042

REACTIONS (1)
  - CLOSTRIDIAL INFECTION [None]
